FAERS Safety Report 9776549 (Version 2)
Quarter: 2013Q4

REPORT INFORMATION
  Report Type: Spontaneous
  Country: JP (occurrence: JP)
  Receive Date: 20131220
  Receipt Date: 20131227
  Transmission Date: 20140711
  Serious: Yes (Hospitalization, Other)
  Sender: FDA-Public Use
  Company Number: JP-B.I. PHARMACEUTICALS,INC./RIDGEFIELD-2013-BI-43232GD

PATIENT
  Age: 77 Year
  Sex: Male

DRUGS (1)
  1. PRADAXA [Suspect]

REACTIONS (3)
  - Haematochezia [Unknown]
  - Large intestine polyp [Unknown]
  - Retroperitoneal neoplasm [Unknown]
